FAERS Safety Report 8188080-1 (Version None)
Quarter: 2012Q1

REPORT INFORMATION
  Report Type: 
  Country: None (occurrence: None)
  Receive Date: 20120306
  Receipt Date: 20120302
  Transmission Date: 20120608
  Serious: No
  Sender: FDA-Public Use
  Company Number: US-PFIZER INC-2012057108

PATIENT
  Sex: Female

DRUGS (2)
  1. LYRICA [Suspect]
     Dosage: 75 MG, DAILY
     Route: 048
  2. LORTAB [Concomitant]
     Dosage: UNK
     Route: 048

REACTIONS (3)
  - INSOMNIA [None]
  - PAIN [None]
  - DRUG INEFFECTIVE [None]
